FAERS Safety Report 22159299 (Version 2)
Quarter: 2023Q2

REPORT INFORMATION
  Report Type: Spontaneous
  Country: JP (occurrence: JP)
  Receive Date: 20230331
  Receipt Date: 20230401
  Transmission Date: 20230722
  Serious: Yes (Other)
  Sender: FDA-Public Use
  Company Number: JP-UNITED THERAPEUTICS-UNT-2023-008734

PATIENT

DRUGS (1)
  1. REMODULIN [Suspect]
     Active Substance: TREPROSTINIL
     Indication: Pulmonary arterial hypertension
     Dosage: UNK, CONTINUING
     Route: 041

REACTIONS (1)
  - Device related infection [Recovered/Resolved]
